FAERS Safety Report 4294085-3 (Version None)
Quarter: 2004Q1

REPORT INFORMATION
  Report Type: 
  Country: None (occurrence: None)
  Receive Date: 20040211
  Receipt Date: 20040129
  Transmission Date: 20041129
  Serious: Yes (Hospitalization)
  Sender: FDA-Public Use
  Company Number: 04H-056-0248972-00

PATIENT
  Age: 6 Year
  Sex: Female
  Weight: 27 kg

DRUGS (5)
  1. ERYTHROCIN LACTOBIONATE [Suspect]
     Dosage: 19 MG/KG, THREE TIMES A DAY (TID) INFUSION, INTRAVENOUS
     Route: 042
     Dates: start: 19970101, end: 19970101
  2. ACYCLOVIR [Concomitant]
  3. METHYLPREDNISOLONE [Concomitant]
  4. CLAVULIN [Concomitant]
  5. JOSAMYCIN [Concomitant]

REACTIONS (1)
  - BRADYCARDIA [None]
